FAERS Safety Report 8524897-9 (Version None)
Quarter: 2012Q3

REPORT INFORMATION
  Report Type: 
  Country: None (occurrence: None)
  Receive Date: 20120720
  Receipt Date: 20120709
  Transmission Date: 20120928
  Serious: Yes (Other)
  Sender: FDA-Public Use
  Company Number: US-VERTEX PHARMACEUTICALS INC.-AE-2012-010573

PATIENT

DRUGS (3)
  1. INCIVEK [Suspect]
     Dates: start: 20110801, end: 20110901
  2. PEGINTERFERON ALFA-2A [Concomitant]
     Dates: start: 20110801
  3. RIBAVIRIN [Concomitant]
     Dates: start: 20110801

REACTIONS (2)
  - DRUG RASH WITH EOSINOPHILIA AND SYSTEMIC SYMPTOMS [None]
  - GAMMA-GLUTAMYLTRANSFERASE INCREASED [None]
